FAERS Safety Report 8066347-5 (Version None)
Quarter: 2012Q1

REPORT INFORMATION
  Report Type: 
  Country: None (occurrence: None)
  Receive Date: 20120124
  Receipt Date: 20120113
  Transmission Date: 20120608
  Serious: Yes (Other)
  Sender: FDA-Public Use
  Company Number: US-ROCHE-1031445

PATIENT
  Sex: Female
  Weight: 58.112 kg

DRUGS (5)
  1. REMICADE [Suspect]
     Indication: PSORIATIC ARTHROPATHY
     Route: 042
  2. PREDNISONE TAB [Concomitant]
     Indication: SWELLING
     Dates: start: 20080101
  3. METHOTREXATE [Concomitant]
     Indication: ARTHRITIS
     Dates: start: 20080101
  4. OTHER DRUGS [Concomitant]
     Indication: BLOOD PRESSURE
     Dates: start: 20080101
  5. RITUXIMAB [Suspect]
     Indication: PSORIATIC ARTHROPATHY

REACTIONS (4)
  - DRUG RESISTANCE [None]
  - ONYCHOMADESIS [None]
  - DRUG EFFECT DECREASED [None]
  - B-LYMPHOCYTE ABNORMALITIES [None]
